FAERS Safety Report 7769872-7 (Version None)
Quarter: 2011Q3

REPORT INFORMATION
  Report Type: 
  Country: None (occurrence: None)
  Receive Date: 20110922
  Receipt Date: 20110531
  Transmission Date: 20111222
  Serious: No
  Sender: FDA-Public Use
  Company Number: US-ASTRAZENECA-2011SE33451

PATIENT
  Age: 56 Year
  Sex: Female
  Weight: 81.6 kg

DRUGS (2)
  1. SEROQUEL [Suspect]
     Indication: BIPOLAR DISORDER
     Route: 048
     Dates: start: 20020101
  2. TEMAZEPAM [Concomitant]

REACTIONS (4)
  - INSOMNIA [None]
  - NERVOUSNESS [None]
  - DRUG DOSE OMISSION [None]
  - PRURITUS GENERALISED [None]
